FAERS Safety Report 14310080 (Version 1)
Quarter: 2017Q4

REPORT INFORMATION
  Report Type: Spontaneous
  Country: US (occurrence: US)
  Receive Date: 20171220
  Receipt Date: 20171220
  Transmission Date: 20180321
  Serious: Yes (Life-Threatening, Hospitalization, Disabling, Other)
  Sender: FDA-Public Use
  Company Number: None

PATIENT
  Age: 70 Year
  Sex: Female
  Weight: 70.31 kg

DRUGS (7)
  1. CAL-MAG 1:1 CAPSULE [Concomitant]
     Active Substance: CALCIUM\MAGNESIUM
  2. ASPRIN [Suspect]
     Active Substance: ASPIRIN
  3. LEVOTHROXINE [Concomitant]
     Active Substance: LEVOTHYROXINE
  4. CREATINE KINASE [Concomitant]
  5. VIT B-12 [Concomitant]
  6. MULTIVIT [Concomitant]
     Active Substance: VITAMINS
  7. SERTRALINE HCL [Suspect]
     Active Substance: SERTRALINE HYDROCHLORIDE
     Indication: ANXIETY
     Route: 048

REACTIONS (18)
  - Musculoskeletal stiffness [None]
  - Arthralgia [None]
  - Chest pain [None]
  - Back pain [None]
  - Coordination abnormal [None]
  - Blood pressure increased [None]
  - Dyskinesia [None]
  - Vomiting [None]
  - Speech disorder [None]
  - Syncope [None]
  - Asthenia [None]
  - Insomnia [None]
  - Anxiety [None]
  - Mental disorder [None]
  - Bradyphrenia [None]
  - Hyperhidrosis [None]
  - Confusional state [None]
  - Malaise [None]

NARRATIVE: CASE EVENT DATE: 20170723
